FAERS Safety Report 10299634 (Version 2)
Quarter: 2014Q3

REPORT INFORMATION
  Report Type: Spontaneous
  Country: US (occurrence: US)
  Receive Date: 20140711
  Receipt Date: 20140711
  Transmission Date: 20150326
  Serious: No
  Sender: FDA-Public Use
  Company Number: US-GILEAD-2013-0079646

PATIENT
  Age: 51 Year
  Sex: Female

DRUGS (2)
  1. LETAIRIS [Suspect]
     Active Substance: AMBRISENTAN
     Indication: PRODUCT USED FOR UNKNOWN INDICATION
     Dosage: 10 MG, UNK
     Dates: start: 20110804, end: 20130707
  2. LETAIRIS [Suspect]
     Active Substance: AMBRISENTAN
     Dates: start: 20110803

REACTIONS (2)
  - Hepatic enzyme abnormal [Unknown]
  - Liver function test abnormal [Not Recovered/Not Resolved]

NARRATIVE: CASE EVENT DATE: 20130707
